FAERS Safety Report 14901006 (Version 1)
Quarter: 2018Q2

REPORT INFORMATION
  Report Type: Spontaneous
  Country: US (occurrence: US)
  Receive Date: 20180427
  Receipt Date: 20180427
  Transmission Date: 20180711
  Serious: Yes (Hospitalization)
  Sender: FDA-Public Use
  Company Number: None

PATIENT
  Age: 3 Year
  Sex: Male

DRUGS (1)
  1. NUTROPIN AQ [Suspect]
     Active Substance: SOMATROPIN
     Indication: CHRONIC KIDNEY DISEASE
     Route: 058
     Dates: start: 20171025

REACTIONS (1)
  - Ill-defined disorder [None]

NARRATIVE: CASE EVENT DATE: 201804
